FAERS Safety Report 6051689-5 (Version None)
Quarter: 2009Q1

REPORT INFORMATION
  Report Type: 
  Country: None (occurrence: None)
  Receive Date: 20090121
  Receipt Date: 20090121
  Transmission Date: 20090719
  Serious: Yes (Life-Threatening, Disabling)
  Sender: FDA-Public Use
  Company Number: None

PATIENT
  Age: 33 Year
  Sex: Male
  Weight: 140.6151 kg

DRUGS (1)
  1. BUPIVACAINE WITH EPINEPHRINE 0.5% AND 1:200,000 ASTRAZENECA [Suspect]
     Indication: SURGERY
     Dosage: 40 ML ONCE INTRA-ARTICULAR
     Route: 014
     Dates: start: 20081030, end: 20081030

REACTIONS (5)
  - CIRCULATORY COLLAPSE [None]
  - CONVULSION [None]
  - DRUG TOXICITY [None]
  - PROCEDURAL COMPLICATION [None]
  - SOMNOLENCE [None]
